FAERS Safety Report 10041615 (Version 1)
Quarter: 2014Q1

REPORT INFORMATION
  Report Type: Spontaneous
  Country: US (occurrence: US)
  Receive Date: 20140327
  Receipt Date: 20140327
  Transmission Date: 20141002
  Serious: No
  Sender: FDA-Public Use
  Company Number: US-ASTRAZENECA-2014SE05734

PATIENT
  Age: 83 Year
  Sex: Female
  Weight: 63 kg

DRUGS (10)
  1. NEXIUM [Suspect]
     Indication: GASTROOESOPHAGEAL REFLUX DISEASE
     Route: 048
  2. LOSARTAN/ HYDROCHLOROTHIAZIDE [Concomitant]
     Indication: BLOOD CHOLESTEROL ABNORMAL
     Dosage: 100/25 MG, DAILY
     Route: 048
  3. AMLODIPINE [Concomitant]
     Indication: BLOOD CHOLESTEROL ABNORMAL
  4. FISH OIL [Concomitant]
     Indication: SUPPLEMENTATION THERAPY
  5. MULTIVITAMINS [Concomitant]
     Indication: SUPPLEMENTATION THERAPY
  6. MULTIMINERALS [Concomitant]
     Indication: SUPPLEMENTATION THERAPY
  7. CALCIUM [Concomitant]
     Indication: SUPPLEMENTATION THERAPY
  8. VITAMIN D3 [Concomitant]
     Indication: SUPPLEMENTATION THERAPY
  9. METFORMIN [Concomitant]
     Indication: DIABETES MELLITUS
  10. PRAVASTATIN [Concomitant]
     Indication: BLOOD CHOLESTEROL ABNORMAL

REACTIONS (2)
  - Muscle spasms [Unknown]
  - Blood magnesium decreased [Unknown]
